FAERS Safety Report 26169638 (Version 1)
Quarter: 2025Q4

REPORT INFORMATION
  Report Type: Spontaneous
  Country: US (occurrence: US)
  Receive Date: 20251217
  Receipt Date: 20251217
  Transmission Date: 20260117
  Serious: Yes (Hospitalization)
  Sender: MYLAN
  Company Number: US-MYLANLABS-2025M1107460

PATIENT
  Age: 55 Year
  Sex: Male

DRUGS (12)
  1. MIDODRINE [Suspect]
     Active Substance: MIDODRINE
     Indication: Hepatorenal syndrome
     Dosage: UNK
  2. MIDODRINE [Suspect]
     Active Substance: MIDODRINE
     Dosage: UNK
     Route: 065
  3. MIDODRINE [Suspect]
     Active Substance: MIDODRINE
     Dosage: UNK
     Route: 065
  4. MIDODRINE [Suspect]
     Active Substance: MIDODRINE
     Dosage: UNK
  5. OCTREOTIDE [Suspect]
     Active Substance: OCTREOTIDE
     Indication: Hepatorenal syndrome
     Dosage: UNK
  6. OCTREOTIDE [Suspect]
     Active Substance: OCTREOTIDE
     Dosage: UNK
     Route: 065
  7. OCTREOTIDE [Suspect]
     Active Substance: OCTREOTIDE
     Dosage: UNK
     Route: 065
  8. OCTREOTIDE [Suspect]
     Active Substance: OCTREOTIDE
     Dosage: UNK
  9. TERLIPRESSIN [Concomitant]
     Active Substance: TERLIPRESSIN
     Indication: Hepatorenal syndrome
     Dosage: 0.85 MILLIGRAM, Q6H (REINITIATED)
  10. TERLIPRESSIN [Concomitant]
     Active Substance: TERLIPRESSIN
     Dosage: 0.85 MILLIGRAM, Q6H (REINITIATED)
     Route: 042
  11. TERLIPRESSIN [Concomitant]
     Active Substance: TERLIPRESSIN
     Dosage: 0.85 MILLIGRAM, Q6H (REINITIATED)
     Route: 042
  12. TERLIPRESSIN [Concomitant]
     Active Substance: TERLIPRESSIN
     Dosage: 0.85 MILLIGRAM, Q6H (REINITIATED)

REACTIONS (2)
  - Drug ineffective for unapproved indication [Unknown]
  - Product prescribing issue [Unknown]
